FAERS Safety Report 14006697 (Version 1)
Quarter: 2017Q3

REPORT INFORMATION
  Report Type: Spontaneous
  Country: JP (occurrence: JP)
  Receive Date: 20170925
  Receipt Date: 20170925
  Transmission Date: 20171128
  Serious: Yes (Life-Threatening, Hospitalization, Other)
  Sender: FDA-Public Use
  Company Number: JP-BRISTOL-MYERS SQUIBB COMPANY-BMS-2017-085006

PATIENT
  Age: 70 Year
  Sex: Male

DRUGS (1)
  1. KENACORT-A [Suspect]
     Active Substance: TRIAMCINOLONE
     Indication: NEOPLASM
     Route: 065

REACTIONS (3)
  - Mediastinal abscess [Unknown]
  - Oesophageal perforation [Unknown]
  - Product use in unapproved indication [Unknown]
